FAERS Safety Report 18485668 (Version 2)
Quarter: 2021Q1

REPORT INFORMATION
  Report Type: Spontaneous
  Country: US (occurrence: US)
  Receive Date: 20201110
  Receipt Date: 20210108
  Transmission Date: 20210419
  Serious: No
  Sender: FDA-Public Use
  Company Number: US-TEVA-2020-US-1846639

PATIENT
  Sex: Female

DRUGS (2)
  1. AUTOJECT2 (DEVICE) [Suspect]
     Active Substance: DEVICE
     Route: 065
  2. GLATIRAMER ACETATE. [Suspect]
     Active Substance: GLATIRAMER ACETATE
     Route: 065

REACTIONS (2)
  - Device delivery system issue [Recovered/Resolved]
  - Injection site urticaria [Unknown]
